FAERS Safety Report 7779225-3 (Version None)
Quarter: 2011Q3

REPORT INFORMATION
  Report Type: 
  Country: None (occurrence: None)
  Receive Date: 20110926
  Receipt Date: 20110919
  Transmission Date: 20111222
  Serious: Yes (Hospitalization, Other)
  Sender: FDA-Public Use
  Company Number: NL-ASTRAZENECA-2011SE55437

PATIENT
  Age: 23860 Day
  Sex: Male
  Weight: 90 kg

DRUGS (6)
  1. LIPITOR [Concomitant]
     Indication: CEREBROVASCULAR ACCIDENT
     Dosage: 20 DAILY
     Route: 048
     Dates: start: 19950101
  2. LIPITOR [Concomitant]
     Route: 048
     Dates: start: 20110201
  3. KEPPRA [Concomitant]
     Indication: EPILEPSY
     Route: 048
     Dates: start: 20110210
  4. IRESSA [Suspect]
     Indication: NON-SMALL CELL LUNG CANCER
     Route: 048
     Dates: start: 20110201
  5. LIPITOR [Concomitant]
     Route: 048
     Dates: start: 20100326
  6. ASCAL [Concomitant]
     Indication: CEREBROVASCULAR ACCIDENT
     Route: 048
     Dates: start: 20100326

REACTIONS (1)
  - CEREBROVASCULAR ACCIDENT [None]
